FAERS Safety Report 25654143 (Version 1)
Quarter: 2025Q3

REPORT INFORMATION
  Report Type: Spontaneous
  Country: TR (occurrence: TR)
  Receive Date: 20250807
  Receipt Date: 20250807
  Transmission Date: 20251020
  Serious: Yes (Other)
  Sender: ASCENT PHARMACEUTICALS INC
  Company Number: TR-ASCENT-2025ASLIT00165

PATIENT
  Age: 15 Year

DRUGS (3)
  1. IBUPROFEN [Suspect]
     Active Substance: IBUPROFEN
     Indication: Drug provocation test
     Route: 065
  2. ACETAMINOPHEN [Suspect]
     Active Substance: ACETAMINOPHEN
     Indication: Drug provocation test
     Route: 065
  3. NAPROXEN [Suspect]
     Active Substance: NAPROXEN
     Indication: Product used for unknown indication
     Route: 065

REACTIONS (4)
  - Angioedema [Unknown]
  - Hypersensitivity [Unknown]
  - Urticaria [Unknown]
  - Cross sensitivity reaction [Unknown]
